FAERS Safety Report 7351430-X (Version None)
Quarter: 2011Q1

REPORT INFORMATION
  Report Type: 
  Country: None (occurrence: None)
  Receive Date: 20110314
  Receipt Date: 20110307
  Transmission Date: 20110831
  Serious: Yes (Hospitalization, Other)
  Sender: FDA-Public Use
  Company Number: DE-ABBOTT-11P-062-0709474-00

PATIENT
  Age: 74 Year
  Sex: Female

DRUGS (23)
  1. LEVETIRACETAM [Concomitant]
     Dosage: 3500 MG DAILY
  2. ALBUMIN (HUMAN) [Concomitant]
     Indication: PRODUCT USED FOR UNKNOWN INDICATION
     Route: 042
  3. ACETAZOLAMIDE [Concomitant]
     Indication: PRODUCT USED FOR UNKNOWN INDICATION
     Route: 042
  4. LEVETIRACETAM [Concomitant]
  5. LEVETIRACETAM [Concomitant]
     Dosage: 4000 MG DAILY
  6. ZONISAMIDE [Concomitant]
     Indication: PRODUCT USED FOR UNKNOWN INDICATION
  7. VALPROIC ACID [Suspect]
     Indication: STATUS EPILEPTICUS
  8. PHENYTOIN [Suspect]
     Indication: APHASIA
     Dosage: OVER 1 HOUR, LOADING DOSE
     Route: 042
  9. PHENYTOIN [Suspect]
     Indication: STATUS EPILEPTICUS
  10. PHENYTOIN [Suspect]
  11. LEVETIRACETAM [Concomitant]
     Indication: PRODUCT USED FOR UNKNOWN INDICATION
  12. LEVETIRACETAM [Concomitant]
     Dosage: 2000 MG WITH 1000 MG INTRAVENOUS DAILY
  13. PREGABALIN [Concomitant]
     Indication: STATUS EPILEPTICUS
  14. VALPROIC ACID [Suspect]
     Indication: APHASIA
  15. LACOSAMIDE [Concomitant]
     Route: 042
  16. CLONAZEPAM [Concomitant]
     Indication: PRODUCT USED FOR UNKNOWN INDICATION
     Route: 050
  17. VALPROIC ACID [Suspect]
     Dosage: 2000 MG DAILY WITH 500 MG INFUSION
  18. TOPIRAMATE [Concomitant]
     Indication: PRODUCT USED FOR UNKNOWN INDICATION
     Dosage: 50 MG DAILY
  19. LORAZEPAM [Concomitant]
     Indication: PRODUCT USED FOR UNKNOWN INDICATION
     Route: 042
  20. VALPROIC ACID [Suspect]
     Dosage: 2000 MG DAILY
  21. VALPROIC ACID [Suspect]
     Dosage: 1800 MG DAILY
  22. LACOSAMIDE [Concomitant]
     Indication: PRODUCT USED FOR UNKNOWN INDICATION
     Dosage: INFUSION
  23. CLONAZEPAM [Concomitant]

REACTIONS (3)
  - GRAND MAL CONVULSION [None]
  - TOXICITY TO VARIOUS AGENTS [None]
  - QUADRIPARESIS [None]
